FAERS Safety Report 22646130 (Version 1)
Quarter: 2023Q2

REPORT INFORMATION
  Report Type: Spontaneous
  Country: US (occurrence: US)
  Receive Date: 20230627
  Receipt Date: 20230627
  Transmission Date: 20230721
  Serious: No
  Sender: FDA-Public Use
  Company Number: US-TEVA-2023-US-2896140

PATIENT
  Age: 93 Year
  Sex: Female
  Weight: 41.73 kg

DRUGS (1)
  1. ALBUTEROL SULFATE [Suspect]
     Active Substance: ALBUTEROL SULFATE
     Indication: Asthma
     Dosage: 1 PUFF EVERY 4 HOURS
     Route: 065

REACTIONS (2)
  - Dyspnoea [Unknown]
  - Product use in unapproved indication [Unknown]
